FAERS Safety Report 5416875-3 (Version None)
Quarter: 2007Q3

REPORT INFORMATION
  Report Type: 
  Country: None (occurrence: None)
  Receive Date: 20070718
  Receipt Date: 20060623
  Transmission Date: 20080115
  Serious: Yes (Hospitalization)
  Sender: FDA-Public Use
  Company Number: 2006057441

PATIENT
  Age: 57 Year
  Sex: Male
  Weight: 70.3075 kg

DRUGS (6)
  1. CELEBREX [Suspect]
     Indication: INFLAMMATION
     Dosage: 200 MG (200 MG, 1 IN 1 D), ORAL; 100 MG (100 MG, 1 IN 1 D), ORAL
     Route: 048
     Dates: start: 20001114, end: 20020228
  2. CELEBREX [Suspect]
     Indication: PAIN
     Dosage: 200 MG (200 MG, 1 IN 1 D), ORAL; 100 MG (100 MG, 1 IN 1 D), ORAL
     Route: 048
     Dates: start: 20001114, end: 20020228
  3. CELEBREX [Suspect]
     Indication: SWELLING
     Dosage: 200 MG (200 MG, 1 IN 1 D), ORAL; 100 MG (100 MG, 1 IN 1 D), ORAL
     Route: 048
     Dates: start: 20001114, end: 20020228
  4. CELEBREX [Suspect]
     Indication: INFLAMMATION
     Dosage: 200 MG (200 MG, 1 IN 1 D), ORAL; 100 MG (100 MG, 1 IN 1 D), ORAL
     Route: 048
     Dates: start: 20020228, end: 20040901
  5. CELEBREX [Suspect]
     Indication: PAIN
     Dosage: 200 MG (200 MG, 1 IN 1 D), ORAL; 100 MG (100 MG, 1 IN 1 D), ORAL
     Route: 048
     Dates: start: 20020228, end: 20040901
  6. CELEBREX [Suspect]
     Indication: SWELLING
     Dosage: 200 MG (200 MG, 1 IN 1 D), ORAL; 100 MG (100 MG, 1 IN 1 D), ORAL
     Route: 048
     Dates: start: 20020228, end: 20040901

REACTIONS (1)
  - CEREBROVASCULAR ACCIDENT [None]
